FAERS Safety Report 17591170 (Version 3)
Quarter: 2020Q2

REPORT INFORMATION
  Report Type: Spontaneous
  Country: US (occurrence: US)
  Receive Date: 20200327
  Receipt Date: 20200603
  Transmission Date: 20200713
  Serious: No
  Sender: FDA-Public Use
  Company Number: US-PFIZER INC-2019060243

PATIENT
  Age: 69 Year
  Sex: Female

DRUGS (1)
  1. LYRICA [Suspect]
     Active Substance: PREGABALIN
     Indication: PAIN
     Dosage: 100 MG (2 CAPSULES OF 50 MG), TWICE A DAY
     Route: 048
     Dates: start: 20190103

REACTIONS (2)
  - Pain in extremity [Unknown]
  - Bradykinesia [Unknown]
